FAERS Safety Report 6128789-4 (Version None)
Quarter: 2009Q1

REPORT INFORMATION
  Report Type: 
  Country: None (occurrence: None)
  Receive Date: 20090320
  Receipt Date: 20081215
  Transmission Date: 20090719
  Serious: Yes (Death)
  Sender: FDA-Public Use
  Company Number: 004783

PATIENT
  Age: 44 Year
  Sex: Female

DRUGS (5)
  1. BUSULFEX [Suspect]
     Indication: STEM CELL TRANSPLANT
     Dosage: 32 MG, QID, INTRAVENOUS
     Route: 042
     Dates: start: 20070807, end: 20070810
  2. DEPAKIN (VALPROATE SODIUM) [Concomitant]
  3. CYCLOPHOSPHAMIDE [Concomitant]
  4. FILGRASTIM (FILGRASTIM) [Concomitant]
  5. CYCLOSPORINE [Concomitant]

REACTIONS (5)
  - CORD BLOOD TRANSPLANT THERAPY [None]
  - FEBRILE NEUTROPENIA [None]
  - HAEMODIALYSIS [None]
  - MULTI-ORGAN DISORDER [None]
  - MULTI-ORGAN FAILURE [None]
